FAERS Safety Report 5489299-0 (Version None)
Quarter: 2007Q4

REPORT INFORMATION
  Report Type: 
  Country: None (occurrence: None)
  Receive Date: 20071005
  Receipt Date: 20070702
  Transmission Date: 20080405
  Serious: No
  Sender: FDA-Public Use
  Company Number: PHEH2007US09526

PATIENT
  Sex: Female

DRUGS (5)
  1. TEKTURNA [Suspect]
  2. PACESONE (PACESONE) [Concomitant]
  3. METFORMIN HCL [Concomitant]
  4. CARDIZEM [Concomitant]
  5. LIPITOR [Concomitant]

REACTIONS (1)
  - DYSPNOEA [None]
